FAERS Safety Report 12552446 (Version 1)
Quarter: 2016Q3

REPORT INFORMATION
  Report Type: Spontaneous
  Country: JP (occurrence: JP)
  Receive Date: 20160713
  Receipt Date: 20160713
  Transmission Date: 20161109
  Serious: Yes (Other)
  Sender: FDA-Public Use
  Company Number: JP-CIPLA LTD.-2016JP09416

PATIENT

DRUGS (2)
  1. GEMCITABINE [Suspect]
     Active Substance: GEMCITABINE\GEMCITABINE HYDROCHLORIDE
     Indication: PANCREATIC CARCINOMA METASTATIC
     Dosage: 1000 MG/M2,DAYS 1, 8 AND 15 OF EACH 28-DAY CYCLE
     Route: 042
  2. GANITUMAB [Suspect]
     Active Substance: GANITUMAB
     Indication: PANCREATIC CARCINOMA METASTATIC
     Dosage: 20 MG/KG, ON DAYS 1 AND 15 OF EACH 28-DAY CYCLE
     Route: 042

REACTIONS (3)
  - Leukopenia [Unknown]
  - Thrombocytopenia [Unknown]
  - Disease progression [Unknown]
